FAERS Safety Report 20721854 (Version 1)
Quarter: 2022Q2

REPORT INFORMATION
  Report Type: Report from Study
  Country: BR (occurrence: BR)
  Receive Date: 20220418
  Receipt Date: 20220418
  Transmission Date: 20220721
  Serious: Yes (Other)
  Sender: FDA-Public Use
  Company Number: BR-NOVARTISPH-PHHY2017BR101940

PATIENT
  Age: 51 Year
  Sex: Female
  Weight: 87 kg

DRUGS (11)
  1. COSENTYX [Suspect]
     Active Substance: SECUKINUMAB
     Indication: Psoriatic arthropathy
     Dosage: 150 MG, QW
     Route: 058
     Dates: start: 20170617
  2. COSENTYX [Suspect]
     Active Substance: SECUKINUMAB
     Dosage: 150 MG, QW
     Route: 058
     Dates: start: 20170624
  3. COSENTYX [Suspect]
     Active Substance: SECUKINUMAB
     Dosage: 150 MG, QW
     Route: 058
     Dates: start: 20170701
  4. COSENTYX [Suspect]
     Active Substance: SECUKINUMAB
     Dosage: UNK
     Route: 065
     Dates: start: 20211216
  5. METHOTREXATE [Concomitant]
     Active Substance: METHOTREXATE
     Indication: Psoriasis
     Dosage: 10 MG, UNK (1 TABLET ON TUESDAYS)
     Route: 048
  6. FOLATE SODIUM [Concomitant]
     Active Substance: FOLATE SODIUM
     Indication: Anaemia
     Dosage: 1 DF, UNK (1 TABLET ON WEDNESDAYS)
     Route: 048
  7. CALCIUM CITRATE [Concomitant]
     Active Substance: CALCIUM CITRATE
     Indication: Product used for unknown indication
     Dosage: 1 DF, QD
     Route: 048
  8. LOSARTAN [Concomitant]
     Active Substance: LOSARTAN
     Indication: Hypertension
     Dosage: 2 DF, QD (9 MONTHS AGO)
     Route: 048
  9. ESOGASTRO IBP [Concomitant]
     Indication: Helicobacter infection
     Dosage: 2 TABLETS OF 20 MG OF ESOPRAZOLE AND 1 TABLET OF AMOXICILLIN
     Route: 048
  10. PURAN [Concomitant]
     Active Substance: LEVOTHYROXINE SODIUM
     Indication: Hormone replacement therapy
     Dosage: 1 DF, UNK (10 YEARS AGO)
     Route: 048
  11. DOXICICLIN [Concomitant]
     Indication: Product used for unknown indication
     Dosage: 1 DF, UNK (BEFORE SLEEPING)
     Route: 048

REACTIONS (11)
  - Hypertensive crisis [Unknown]
  - Pain [Unknown]
  - Feeling abnormal [Recovered/Resolved]
  - Malaise [Unknown]
  - Nervousness [Unknown]
  - Weight decreased [Unknown]
  - Contusion [Unknown]
  - Seborrhoea [Unknown]
  - Skin lesion [Unknown]
  - Skin plaque [Unknown]
  - Drug ineffective [Unknown]

NARRATIVE: CASE EVENT DATE: 20170706
